FAERS Safety Report 6399331-8 (Version None)
Quarter: 2009Q4

REPORT INFORMATION
  Report Type: 
  Country: None (occurrence: None)
  Receive Date: 20091014
  Receipt Date: 20070726
  Transmission Date: 20100525
  Serious: Yes (Other)
  Sender: FDA-Public Use
  Company Number: US-ASTRAZENECA-2007UW02447

PATIENT
  Age: 44 Year
  Sex: Male
  Weight: 120.2 kg

DRUGS (24)
  1. SEROQUEL [Suspect]
     Indication: SCHIZOPHRENIA
     Route: 048
     Dates: start: 19980101, end: 20070101
  2. SEROQUEL [Suspect]
     Indication: INSOMNIA
     Route: 048
     Dates: start: 19980101, end: 20070101
  3. SEROQUEL [Suspect]
     Dosage: 200 MG TO 600 MG
     Route: 048
     Dates: start: 20000101
  4. SEROQUEL [Suspect]
     Dosage: 200 MG TO 600 MG
     Route: 048
     Dates: start: 20000101
  5. CLOZARIL [Concomitant]
     Dates: start: 19830101
  6. HALDOL [Concomitant]
     Dates: start: 19790101
  7. NAVANE (THIOTHIXINE) [Concomitant]
     Dates: start: 19790101
  8. STELAZINE [Concomitant]
     Dates: start: 19790101
  9. THORAZINE [Concomitant]
     Dosage: 200MG, 300MG AT NIGHT
  10. DARVOCET-N 100 [Concomitant]
     Indication: PAIN
     Dosage: 100 MG TO 600 MG
     Dates: start: 20000225
  11. DARVOCET-N 100 [Concomitant]
     Indication: PLANTAR FASCIITIS
     Dosage: 100 MG TO 600 MG
     Dates: start: 20000225
  12. PREDNISONE [Concomitant]
     Route: 048
     Dates: start: 20061009
  13. SKELAXIN [Concomitant]
     Route: 048
     Dates: start: 20060923
  14. TOPROL-XL [Concomitant]
     Indication: HYPERTENSION
     Route: 048
     Dates: start: 20040512
  15. NEXIUM [Concomitant]
     Indication: GASTROOESOPHAGEAL REFLUX DISEASE
     Route: 048
     Dates: start: 20040512
  16. LIPITOR [Concomitant]
     Indication: HYPERLIPIDAEMIA
     Dates: start: 20000824
  17. NAPROSYN [Concomitant]
     Route: 048
     Dates: start: 20050216
  18. FLEXERIL [Concomitant]
     Route: 048
     Dates: start: 20050216
  19. GLUCOTROL/GLUCOTROL XL [Concomitant]
     Dosage: 5 MG TO 1500 MG
     Dates: start: 20001117
  20. GLUCOVANCE [Concomitant]
     Dosage: 2.5/500 ONCE A DAY
     Dates: start: 20001117
  21. TRAZODONE [Concomitant]
     Route: 048
     Dates: start: 20021217
  22. VALPROIC ACID [Concomitant]
     Dates: start: 20021217
  23. AMARYL [Concomitant]
     Route: 048
     Dates: start: 20040512
  24. GLUCOPHAGE [Concomitant]
     Dates: start: 20040512

REACTIONS (13)
  - BACK PAIN [None]
  - BLOOD CHOLESTEROL INCREASED [None]
  - DIABETES MELLITUS [None]
  - DIABETES MELLITUS INADEQUATE CONTROL [None]
  - DIABETIC FOOT [None]
  - DIABETIC NEUROPATHY [None]
  - HYPERCHOLESTEROLAEMIA [None]
  - HYPERGLYCAEMIA [None]
  - HYPERLIPIDAEMIA [None]
  - HYPERTRIGLYCERIDAEMIA [None]
  - MIXED HYPERLIPIDAEMIA [None]
  - NEUROPATHY PERIPHERAL [None]
  - TYPE 2 DIABETES MELLITUS [None]
